FAERS Safety Report 22206579 (Version 2)
Quarter: 2024Q2

REPORT INFORMATION
  Report Type: Spontaneous
  Country: TW (occurrence: TW)
  Receive Date: 20230413
  Receipt Date: 20240417
  Transmission Date: 20240716
  Serious: Yes (Other)
  Sender: FDA-Public Use
  Company Number: TW-SUN PHARMACEUTICAL INDUSTRIES LTD-2023RR-384319

PATIENT
  Age: 51 Year
  Sex: Female

DRUGS (4)
  1. TEMOZOLOMIDE [Suspect]
     Active Substance: TEMOZOLOMIDE
     Indication: Glioblastoma
     Dosage: UNK
     Route: 065
  2. BEVACIZUMAB [Concomitant]
     Active Substance: BEVACIZUMAB
     Indication: Glioblastoma
     Dosage: 15 MILLIGRAM/KILOGRAM, D0
     Route: 065
  3. ETOPOSIDE [Concomitant]
     Active Substance: ETOPOSIDE
     Indication: Glioblastoma
     Dosage: 70 MILLIGRAM/SQ. METER, D1-D3
     Route: 065
  4. CISPLATIN [Concomitant]
     Active Substance: CISPLATIN
     Indication: Glioblastoma
     Dosage: 70 MILLIGRAM/SQ. METER, D1, Q21D
     Route: 065

REACTIONS (2)
  - Drug ineffective [Unknown]
  - Dyspnoea [Recovered/Resolved]
